FAERS Safety Report 5865747-9 (Version None)
Quarter: 2008Q3

REPORT INFORMATION
  Report Type: 
  Country: None (occurrence: None)
  Receive Date: 20080829
  Receipt Date: 20080821
  Transmission Date: 20090109
  Serious: Yes (Other)
  Sender: FDA-Public Use
  Company Number: CH-ASTRAZENECA-2008PK01819

PATIENT
  Age: 20233 Day
  Sex: Female
  Weight: 75 kg

DRUGS (3)
  1. NAROPIN [Suspect]
     Indication: LOCAL ANAESTHESIA
     Route: 058
     Dates: start: 20080502
  2. EPINEPHRINE [Concomitant]
     Indication: LOCAL ANAESTHESIA
     Route: 058
     Dates: start: 20080502
  3. MIDAZOLAM HCL [Concomitant]
     Indication: SEDATIVE THERAPY
     Route: 030

REACTIONS (2)
  - FACIAL PARESIS [None]
  - NEUROTOXICITY [None]
